FAERS Safety Report 5720739-5 (Version None)
Quarter: 2008Q2

REPORT INFORMATION
  Report Type: 
  Country: None (occurrence: None)
  Receive Date: 20080429
  Receipt Date: 20080423
  Transmission Date: 20081010
  Serious: Yes (Other)
  Sender: FDA-Public Use
  Company Number: PHEH2008US03996

PATIENT

DRUGS (2)
  1. HYZAAR [Concomitant]
  2. TEKTURNA [Suspect]
     Dosage: 150 MG, UNK

REACTIONS (1)
  - BLOOD CREATININE INCREASED [None]
